FAERS Safety Report 6714985-1 (Version None)
Quarter: 2010Q2

REPORT INFORMATION
  Report Type: 
  Country: None (occurrence: None)
  Receive Date: 20100506
  Receipt Date: 20100506
  Transmission Date: 20101027
  Serious: Yes (Other)
  Sender: FDA-Public Use
  Company Number: None

PATIENT
  Age: 3 Year
  Sex: Male
  Weight: 18.1439 kg

DRUGS (2)
  1. CONCENTRATED TYLENOL INFANT DROPS [Suspect]
     Indication: SINUS HEADACHE
     Dosage: 1.6 ML INFANT TYLENOL 1 PO 1 DOSE IN 24 HOURS
     Route: 048
     Dates: start: 20100331, end: 20100331
  2. CHILDREN'S MOTRIN [Suspect]
     Dosage: 5 ML MOTRIN 1 PO
     Route: 048

REACTIONS (6)
  - DEHYDRATION [None]
  - DIARRHOEA [None]
  - GASTRIC DISORDER [None]
  - LETHARGY [None]
  - PRODUCT QUALITY ISSUE [None]
  - SINUS HEADACHE [None]
